FAERS Safety Report 15170202 (Version 7)
Quarter: 2019Q4

REPORT INFORMATION
  Report Type: Spontaneous
  Country: NL (occurrence: NL)
  Receive Date: 20180720
  Receipt Date: 20191002
  Transmission Date: 20200122
  Serious: Yes (Other)
  Sender: FDA-Public Use
  Company Number: NL-ACCORD-069734

PATIENT
  Age: 67 Year
  Sex: Male

DRUGS (12)
  1. QUETIAPINE. [Suspect]
     Active Substance: QUETIAPINE
     Indication: PARKINSON^S DISEASE PSYCHOSIS
     Dosage: 400 MG, UNK
     Route: 065
  2. PERGOLIDE [Suspect]
     Active Substance: PERGOLIDE
     Indication: PARKINSON^S DISEASE
     Dosage: 0.75 MG, UNK
     Route: 065
  3. MADOPAR [Suspect]
     Active Substance: BENSERAZIDE HYDROCHLORIDE\LEVODOPA
     Indication: PARKINSON^S DISEASE
     Dosage: 250 MG, UNK
     Route: 065
  4. ROPINIROLE/ROPINIROLE HYDROCHLORIDE [Suspect]
     Active Substance: ROPINIROLE HYDROCHLORIDE
     Indication: PARKINSON^S DISEASE
     Dosage: 9 MG,?0.75 MG, UNK
     Route: 065
  5. CLOZAPINE. [Suspect]
     Active Substance: CLOZAPINE
     Indication: PARKINSON^S DISEASE
     Dosage: 75 MG,?14.1 MG, UNK
     Route: 065
  6. RIVASTIGMINE/RIVASTIGMINE TARTRATE [Suspect]
     Active Substance: RIVASTIGMINE
     Indication: PARKINSON^S DISEASE PSYCHOSIS
     Dosage: 14.1 MG
     Route: 062
  7. MIRTAZAPINE. [Suspect]
     Active Substance: MIRTAZAPINE
     Indication: SEDATION
     Dosage: 30 MG,
     Route: 065
  8. CLONAZEPAM. [Concomitant]
     Active Substance: CLONAZEPAM
     Indication: SEDATION
     Dosage: 1 MG, QD
     Route: 065
  9. CARBIDOPA/ENTACAPONE/LEVODOPA [Suspect]
     Active Substance: CARBIDOPA\ENTACAPONE\LEVODOPA
     Indication: PARKINSON^S DISEASE
     Dosage: 100 MG, UNK
     Route: 065
  10. AMANTADINE. [Suspect]
     Active Substance: AMANTADINE HYDROCHLORIDE
     Indication: PARKINSON^S DISEASE
     Dosage: 200 MG, UNK
     Route: 065
  11. ELDEPRYL [Suspect]
     Active Substance: SELEGILINE HYDROCHLORIDE
     Indication: PARKINSON^S DISEASE
     Dosage: 10 MG, UNK
     Route: 065
  12. REMERON [Suspect]
     Active Substance: MIRTAZAPINE
     Indication: PRODUCT USED FOR UNKNOWN INDICATION
     Dosage: 30 MG,
     Route: 048

REACTIONS (10)
  - Screaming [Unknown]
  - Hallucination, visual [Recovering/Resolving]
  - Off label use [Unknown]
  - Psychotic disorder [Recovering/Resolving]
  - Anxiety [Unknown]
  - Feeling abnormal [Unknown]
  - Drug ineffective [Unknown]
  - Hypersomnia [Recovered/Resolved]
  - Insomnia [Recovered/Resolved]
  - Condition aggravated [Unknown]
